FAERS Safety Report 6211366-4 (Version None)
Quarter: 2009Q2

REPORT INFORMATION
  Report Type: 
  Country: None (occurrence: None)
  Receive Date: 20090522
  Receipt Date: 20090420
  Transmission Date: 20091009
  Serious: No
  Sender: FDA-Public Use
  Company Number: 8044981

PATIENT
  Age: 72 Year
  Sex: Male
  Weight: 117.9 kg

DRUGS (12)
  1. CIMZIA [Suspect]
     Indication: CROHN'S DISEASE
     Dosage: 400 MG SC
     Route: 058
     Dates: start: 20081001
  2. ASACOL [Concomitant]
  3. CELEBREX [Concomitant]
  4. GABAPENTIN [Concomitant]
  5. GLIMEPIRIDE [Concomitant]
  6. JANUVIA [Concomitant]
  7. LEVOTHYROXINE SODIUM [Concomitant]
  8. LISINOPRIL [Concomitant]
  9. METHADONE [Concomitant]
  10. PROMETHAZINE [Concomitant]
  11. PROVIGIL [Concomitant]
  12. TEKTURNA [Concomitant]

REACTIONS (2)
  - SINUSITIS [None]
  - URINARY TRACT INFECTION [None]
